FAERS Safety Report 8208573-8 (Version None)
Quarter: 2012Q1

REPORT INFORMATION
  Report Type: 
  Country: None (occurrence: None)
  Receive Date: 20120314
  Receipt Date: 20120308
  Transmission Date: 20120608
  Serious: Yes (Other)
  Sender: FDA-Public Use
  Company Number: US-GLAXOSMITHKLINE-A0969690A

PATIENT
  Sex: Male
  Weight: 73.6 kg

DRUGS (4)
  1. IBUPROFEN (ADVIL) [Concomitant]
  2. BACLOFEN [Concomitant]
  3. AMLODIPINE [Concomitant]
  4. VOTRIENT [Suspect]
     Indication: PRODUCT USED FOR UNKNOWN INDICATION
     Dosage: 400MG PER DAY
     Route: 048

REACTIONS (5)
  - HYPERTENSION [None]
  - NEOPLASM [None]
  - DIARRHOEA [None]
  - THYROID DISORDER [None]
  - DRUG INEFFECTIVE [None]
